FAERS Safety Report 12728512 (Version 1)
Quarter: 2016Q3

REPORT INFORMATION
  Report Type: Spontaneous
  Country: US (occurrence: US)
  Receive Date: 20160907
  Receipt Date: 20160907
  Transmission Date: 20161109
  Serious: Yes (Disabling)
  Sender: FDA-Public Use
  Company Number: None

PATIENT
  Age: 73 Year
  Sex: Female
  Weight: 72 kg

DRUGS (12)
  1. ALENDRONATE [Suspect]
     Active Substance: ALENDRONATE SODIUM
     Indication: OSTEOPENIA
     Dosage: OTHER
     Route: 048
     Dates: start: 20151109, end: 20151130
  2. ALLER-FEX [Concomitant]
  3. BIOTIN [Concomitant]
     Active Substance: BIOTIN
  4. COLACE [Concomitant]
     Active Substance: DOCUSATE SODIUM
  5. MULTI-VITAMIN [Concomitant]
     Active Substance: .ALPHA.-TOCOPHEROL ACETATE, DL-\ASCORBIC ACID\CYANOCOBALAMIN\FLUORIDE ION\FOLIC ACID\NIACIN\PYRIDOXINE\RIBOFLAVIN\THIAMINE\VITAMIN A\VITAMIN D
  6. VITAMIN D3 [Concomitant]
     Active Substance: CHOLECALCIFEROL
  7. CALCIUM CITRATE [Concomitant]
     Active Substance: CALCIUM CITRATE
  8. MIRALAX [Concomitant]
     Active Substance: POLYETHYLENE GLYCOL 3350
  9. MEGA-RED JOINT RELIEF [Concomitant]
  10. MOBIC [Concomitant]
     Active Substance: MELOXICAM
  11. VITAMIN B [Concomitant]
     Active Substance: VITAMIN B
  12. FLUTICASONE [Concomitant]
     Active Substance: FLUTICASONE\FLUTICASONE PROPIONATE

REACTIONS (2)
  - Bone pain [None]
  - Abdominal pain [None]

NARRATIVE: CASE EVENT DATE: 20151109
